FAERS Safety Report 4388967-1 (Version None)
Quarter: 2004Q2

REPORT INFORMATION
  Report Type: 
  Country: None (occurrence: None)
  Receive Date: 20040628
  Receipt Date: 20040622
  Transmission Date: 20050107
  Serious: Yes (Hospitalization)
  Sender: FDA-Public Use
  Company Number: GBWYE777124MAY04

PATIENT
  Age: 65 Year
  Sex: Female

DRUGS (8)
  1. RAPAMUNE [Suspect]
     Dosage: 4 MG 1X PER 1 DAY
     Route: 048
     Dates: start: 20030629
  2. ZENAPAX [Concomitant]
  3. ZENAPAX [Concomitant]
  4. MYCOPHENOLATE MOFETIL (MYCOPHENOLATE MOFETIL) [Concomitant]
  5. DOXAZOSIN (DOXAZOSIN) [Concomitant]
  6. SODIUM BICARBONATE IN PLASTIC CONTAINER [Concomitant]
  7. AMLODIPINE [Concomitant]
  8. AMLODIPINE [Concomitant]

REACTIONS (5)
  - ATRIAL FIBRILLATION [None]
  - CARDIAC FAILURE [None]
  - FLUID OVERLOAD [None]
  - LOWER RESPIRATORY TRACT INFECTION [None]
  - LUNG CONSOLIDATION [None]
